FAERS Safety Report 7582496 (Version 8)
Quarter: 2016Q2

REPORT INFORMATION
  Report Type: Report from Study
  Country: BR (occurrence: BR)
  Receive Date: 20100913
  Receipt Date: 20160411
  Transmission Date: 20160815
  Serious: Yes (Hospitalization, Other)
  Sender: FDA-Public Use
  Company Number: PHHY2010BR57830

PATIENT
  Age: 74 Year
  Sex: Female
  Weight: 62 kg

DRUGS (10)
  1. DIOVAN HCT [Suspect]
     Active Substance: HYDROCHLOROTHIAZIDE\VALSARTAN
     Dosage: 2 DF (160 MG OF VALSARTAN AND 12.5 MG OF HYDROCHLOROTHIAZIDE), QD (IN THE MORNING AND AT NIGHT)
     Route: 048
     Dates: start: 2006
  2. PURAN [Concomitant]
     Active Substance: LEVOTHYROXINE SODIUM
     Indication: HYPERTHYROIDISM
     Dosage: 1 DF (88 MCG), QD
     Route: 048
  3. DIOVAN HCT [Suspect]
     Active Substance: HYDROCHLOROTHIAZIDE\VALSARTAN
     Dosage: 1 DF, BID (160 MG OF VALSARTAN AND 12.5 MG OF HYDROCHLOROTHIAZIDE), 10 YEARS AGO
     Route: 048
  4. MINERAL ICE [Concomitant]
     Indication: PAIN
     Dosage: 1 DF, BID
     Route: 061
     Dates: start: 1996
  5. DIOVAN HCT [Suspect]
     Active Substance: HYDROCHLOROTHIAZIDE\VALSARTAN
     Dosage: 2 DF (160 MG OF VALSARTAN AND 12.5 MG OF HYDROCHLOROTHIAZIDE),  BID
     Route: 048
  6. DIOVAN [Suspect]
     Active Substance: VALSARTAN
     Dosage: 5 DF (80 MG), (2 TABLETS IN THE MORNING, 1 TABLET AFTERNOON AND 2 TABLETS IN NIGHT)
     Route: 065
  7. DIOVAN [Suspect]
     Active Substance: VALSARTAN
     Dosage: 80 MG, UNK, 10 YEARS AGO
     Route: 048
  8. DIOVAN HCT [Suspect]
     Active Substance: HYDROCHLOROTHIAZIDE\VALSARTAN
     Indication: HYPERTENSION
     Dosage: 1 DF, (160 MG OF VALSARTAN AND 12.5 MG OF HYDROCHLOROTHIAZIDE), QD
     Route: 048
  9. DIOVAN [Suspect]
     Active Substance: VALSARTAN
     Indication: HYPERTENSION
     Dosage: 1 DF(80 MG IN THE AFTERNOON) , QD
     Route: 048
     Dates: start: 2006
  10. RIVOTRIL [Concomitant]
     Active Substance: CLONAZEPAM
     Indication: INSOMNIA
     Dosage: 1 DF, QD (1 TABLET A DAY AT NIGHT)
     Route: 048
     Dates: start: 1930

REACTIONS (18)
  - Neurological symptom [Unknown]
  - Balance disorder [Unknown]
  - Pain in extremity [Unknown]
  - Blood pressure fluctuation [Unknown]
  - Hypertension [Unknown]
  - Drug administration error [Unknown]
  - Head injury [Recovered/Resolved]
  - Back pain [Unknown]
  - Drug ineffective [Unknown]
  - Labyrinthitis [Unknown]
  - Depression [Recovering/Resolving]
  - Fall [Recovered/Resolved]
  - Blood pressure increased [Recovered/Resolved]
  - Gait disturbance [Recovering/Resolving]
  - Back injury [Recovering/Resolving]
  - Hydrocephalus [Unknown]
  - Mobility decreased [Recovering/Resolving]
  - Incorrect dose administered [Unknown]

NARRATIVE: CASE EVENT DATE: 201001
